FAERS Safety Report 13060011 (Version 2)
Quarter: 2017Q1

REPORT INFORMATION
  Report Type: Spontaneous
  Country: DE (occurrence: DE)
  Receive Date: 20161223
  Receipt Date: 20170331
  Transmission Date: 20170428
  Serious: Yes (Death, Other)
  Sender: FDA-Public Use
  Company Number: DE-APOPHARMA USA, INC.-2016AP016093

PATIENT
  Age: 13 Year
  Sex: Male

DRUGS (2)
  1. ETOPOSIDE. [Concomitant]
     Active Substance: ETOPOSIDE
     Indication: STEM CELL TRANSPLANT
     Route: 065
  2. ALKERAN [Suspect]
     Active Substance: MELPHALAN
     Indication: EWING^S SARCOMA
     Dosage: UNK
     Route: 065

REACTIONS (1)
  - Myelodysplastic syndrome [Fatal]
